FAERS Safety Report 6262381-6 (Version None)
Quarter: 2009Q3

REPORT INFORMATION
  Report Type: 
  Country: None (occurrence: None)
  Receive Date: 20090709
  Receipt Date: 20090630
  Transmission Date: 20100115
  Serious: Yes (Other)
  Sender: FDA-Public Use
  Company Number: US-JNJFOC-20090502295

PATIENT
  Sex: Female
  Weight: 56.25 kg

DRUGS (28)
  1. DOXIL [Suspect]
     Dosage: 47.4 -48 MG
     Route: 042
  2. DOXIL [Suspect]
     Dosage: 47.4 -48 MG
     Route: 042
  3. DOXIL [Suspect]
     Dosage: 47.4 -48 MG
     Route: 042
  4. DOXIL [Suspect]
     Dosage: 47.4 -48 MG
     Route: 042
  5. DOXIL [Suspect]
     Dosage: 47.4 -48 MG
     Route: 042
  6. DOXIL [Suspect]
     Indication: MULTIPLE MYELOMA
     Dosage: 47.4 -48 MG
     Route: 042
  7. VELCADE [Suspect]
     Route: 042
  8. VELCADE [Suspect]
     Route: 042
  9. VELCADE [Suspect]
     Route: 042
  10. VELCADE [Suspect]
     Route: 042
  11. VELCADE [Suspect]
     Route: 042
  12. VELCADE [Suspect]
     Route: 042
  13. VELCADE [Suspect]
     Route: 042
  14. VELCADE [Suspect]
     Route: 042
  15. VELCADE [Suspect]
     Route: 042
  16. VELCADE [Suspect]
     Route: 042
  17. VELCADE [Suspect]
     Indication: MULTIPLE MYELOMA
     Route: 042
  18. ZOMETA [Suspect]
     Route: 065
  19. ZOMETA [Suspect]
     Route: 065
  20. ZOMETA [Suspect]
     Route: 065
  21. ZOMETA [Suspect]
     Route: 065
  22. ZOMETA [Suspect]
     Route: 065
  23. ZOMETA [Suspect]
     Indication: MULTIPLE MYELOMA
     Route: 065
  24. BENADRYL [Concomitant]
     Dosage: GIVEN AT LAST CYCLE (5 OR 6)
     Route: 065
  25. BENADRYL [Concomitant]
     Indication: PREMEDICATION
     Dosage: WITH CYCLES 2 TO 4
     Route: 065
  26. DECADRON [Concomitant]
     Dosage: GIVEN AT LAST CYCLE (5 OR 6)
     Route: 065
  27. DECADRON [Concomitant]
     Dosage: GIVEN AT LAST CYCLE (5 OR 6)
     Route: 065
  28. DECADRON [Concomitant]
     Indication: MULTIPLE MYELOMA
     Dosage: GIVEN AT CYCLE 2 TO 4
     Route: 065

REACTIONS (8)
  - ABDOMINAL DISTENSION [None]
  - EYE INFLAMMATION [None]
  - FLUSHING [None]
  - GLAUCOMA [None]
  - HYPOTENSION [None]
  - INFUSION RELATED REACTION [None]
  - MALAISE [None]
  - NAUSEA [None]
